FAERS Safety Report 8935549 (Version 2)
Quarter: 2012Q4

REPORT INFORMATION
  Report Type: 
  Country: CA (occurrence: CA)
  Receive Date: 20121130
  Receipt Date: 20121211
  Transmission Date: 20130627
  Serious: Yes (Hospitalization)
  Sender: FDA-Public Use
  Company Number: PHHY2012CA109480

PATIENT
  Sex: Male

DRUGS (4)
  1. CLOZARIL [Suspect]
     Indication: SCHIZOPHRENIA
     Dosage: 200 UNK, daily
     Route: 048
     Dates: start: 20120627
  2. CLOZARIL [Suspect]
     Dosage: 300 UNK, daily
     Route: 048
  3. VALPROATE [Concomitant]
  4. CLONAZEPAN [Concomitant]

REACTIONS (2)
  - Parotitis [Recovered/Resolved]
  - Face oedema [Unknown]
